FAERS Safety Report 5423688-5 (Version None)
Quarter: 2007Q3

REPORT INFORMATION
  Report Type: 
  Country: None (occurrence: None)
  Receive Date: 20070823
  Receipt Date: 20070817
  Transmission Date: 20080115
  Serious: Yes (Life-Threatening, Hospitalization)
  Sender: FDA-Public Use
  Company Number: B0484119A

PATIENT
  Age: 53 Year
  Sex: Female

DRUGS (3)
  1. AUGMENTIN '125' [Suspect]
     Route: 042
     Dates: start: 20070104, end: 20070104
  2. DIPRIVAN [Concomitant]
     Route: 042
     Dates: start: 20070104, end: 20070104
  3. SUFENTA [Concomitant]
     Route: 042
     Dates: start: 20070104, end: 20070104

REACTIONS (4)
  - ANAPHYLACTIC SHOCK [None]
  - BLOOD PRESSURE IMMEASURABLE [None]
  - BRONCHOSPASM [None]
  - SINUS TACHYCARDIA [None]
